FAERS Safety Report 9834069 (Version 1)
Quarter: 2014Q1

REPORT INFORMATION
  Report Type: Spontaneous
  Country: US (occurrence: US)
  Receive Date: 20140122
  Receipt Date: 20140122
  Transmission Date: 20141002
  Serious: Yes (Hospitalization, Other)
  Sender: FDA-Public Use
  Company Number: US-ASTRAZENECA-2014SE02601

PATIENT
  Age: 69 Year
  Sex: Female
  Weight: 142.9 kg

DRUGS (9)
  1. NEXIUM [Suspect]
     Indication: ABDOMINAL DISCOMFORT
     Route: 048
  2. NEXIUM [Suspect]
     Indication: ABDOMINAL DISCOMFORT
     Route: 048
  3. TOPROL XL [Suspect]
     Indication: CARDIAC FAILURE CONGESTIVE
     Dosage: 50 MG OR 100 MG DAILY
     Route: 048
  4. TOPROL XL [Suspect]
     Indication: CARDIAC FAILURE CONGESTIVE
     Route: 048
  5. TOPROL XL [Suspect]
     Indication: CARDIAC FAILURE CONGESTIVE
     Dosage: GENERIC, 150 MG DAILY
     Route: 065
  6. LEVOTHYROXINE [Concomitant]
     Indication: THYROID DISORDER
     Dosage: DAILY
     Route: 048
  7. SPIRONOLACTONE [Concomitant]
     Indication: CARDIAC DISORDER
     Route: 048
  8. SPIRONOLACTONE [Concomitant]
     Indication: FLUID RETENTION
     Route: 048
  9. TORMESIDE [Concomitant]

REACTIONS (14)
  - Cystitis [Unknown]
  - Cardiac failure chronic [Unknown]
  - Urinary tract infection [Recovered/Resolved]
  - Skin discolouration [Recovered/Resolved]
  - Visual impairment [Recovered/Resolved]
  - Asthenia [Recovered/Resolved]
  - Nausea [Recovered/Resolved]
  - Vomiting [Recovered/Resolved]
  - Dyspepsia [Recovering/Resolving]
  - Abdominal discomfort [Recovering/Resolving]
  - Cardiac disorder [Unknown]
  - Adverse drug reaction [Unknown]
  - Gastrooesophageal reflux disease [Recovering/Resolving]
  - Off label use [Unknown]
